FAERS Safety Report 4441988-2 (Version None)
Quarter: 2004Q3

REPORT INFORMATION
  Report Type: 
  Country: None (occurrence: None)
  Receive Date: 20040907
  Receipt Date: 20040824
  Transmission Date: 20050211
  Serious: Yes (Death)
  Sender: FDA-Public Use
  Company Number: GB-GLAXOSMITHKLINE-B0344083A

PATIENT

DRUGS (1)
  1. SERETIDE [Suspect]
     Route: 055

REACTIONS (1)
  - DEATH [None]
